FAERS Safety Report 12944262 (Version 3)
Quarter: 2016Q4

REPORT INFORMATION
  Report Type: Spontaneous
  Country: IT (occurrence: IT)
  Receive Date: 20161115
  Receipt Date: 20161118
  Transmission Date: 20170207
  Serious: Yes (Other)
  Sender: FDA-Public Use
  Company Number: IT-TEVA-711600ACC

PATIENT
  Age: 73 Year
  Sex: Female
  Weight: 60 kg

DRUGS (8)
  1. HERCEPTIN [Concomitant]
     Active Substance: TRASTUZUMAB
     Indication: METAPLASTIC BREAST CARCINOMA
     Dosage: 600 MG
     Route: 058
     Dates: start: 20160718, end: 20160905
  2. LASIX [Concomitant]
     Active Substance: FUROSEMIDE
     Indication: PRODUCT USED FOR UNKNOWN INDICATION
  3. PROPRANOLOL [Concomitant]
     Active Substance: PROPRANOLOL\PROPRANOLOL HYDROCHLORIDE
     Indication: PRODUCT USED FOR UNKNOWN INDICATION
  4. PERJETA [Concomitant]
     Active Substance: PERTUZUMAB
     Indication: METAPLASTIC BREAST CARCINOMA
     Dosage: 420 MG
     Route: 042
     Dates: start: 20160718, end: 20160905
  5. LAEVOLAC EPS [Concomitant]
     Indication: PRODUCT USED FOR UNKNOWN INDICATION
  6. OMEPRAZOLE. [Concomitant]
     Active Substance: OMEPRAZOLE
     Indication: PRODUCT USED FOR UNKNOWN INDICATION
     Dosage: 40 MG
  7. NEBIVOLOL. [Concomitant]
     Active Substance: NEBIVOLOL
     Indication: PRODUCT USED FOR UNKNOWN INDICATION
  8. PACLITAXEL. [Suspect]
     Active Substance: PACLITAXEL
     Indication: METAPLASTIC BREAST CARCINOMA
     Dosage: 60 MG CYCLICAL
     Route: 042
     Dates: start: 20160718, end: 20160905

REACTIONS (2)
  - Vertigo [Unknown]
  - Fall [Unknown]

NARRATIVE: CASE EVENT DATE: 20161001
